FAERS Safety Report 22283183 (Version 2)
Quarter: 2025Q2

REPORT INFORMATION
  Report Type: Spontaneous
  Country: US (occurrence: US)
  Receive Date: 20230504
  Receipt Date: 20250528
  Transmission Date: 20250717
  Serious: No
  Sender: CIPLA
  Company Number: US-CIPLA LTD.-2023US01865

PATIENT

DRUGS (11)
  1. ALBUTEROL [Suspect]
     Active Substance: ALBUTEROL
     Indication: Asthma
     Route: 065
  2. ALBUTEROL [Suspect]
     Active Substance: ALBUTEROL
     Dosage: 360 MICROGRAM, QID (4 PUFFS, QID)
     Dates: start: 202303
  3. ALBUTEROL [Suspect]
     Active Substance: ALBUTEROL
     Dosage: 360 MICROGRAM, QID (4 PUFFS, QID)
     Dates: start: 202303
  4. ALPRAZOLAM [Concomitant]
     Active Substance: ALPRAZOLAM
     Indication: Panic attack
     Dosage: 1 MILLIGRAM, TID (AROUND 1998)
     Route: 065
  5. ATORVASTATIN [Concomitant]
     Active Substance: ATORVASTATIN
     Indication: Blood cholesterol abnormal
     Dosage: 20 MILLIGRAM, BID (AROUND 1993)
     Route: 065
  6. LASIX [Concomitant]
     Active Substance: FUROSEMIDE
     Indication: Product used for unknown indication
     Dosage: 20 MILLIGRAM, BID (AROUND 1993)
     Route: 065
  7. POTASSIUM [Concomitant]
     Active Substance: POTASSIUM
     Indication: Product used for unknown indication
     Dosage: 10 MILLIEQUIVALENT, BID (AROUND 1993)
     Route: 065
  8. ASPIRIN [Concomitant]
     Active Substance: ASPIRIN
     Indication: Hypercoagulation
     Dosage: 81 MILLIGRAM, QD (AROUND 1993)
     Route: 065
  9. FOLIC ACID [Concomitant]
     Active Substance: FOLIC ACID
     Indication: Cardiac disorder
     Dosage: 1 MILLIGRAM, QD (ONE IN THE MORNING)
     Route: 065
  10. LOVASTATIN [Concomitant]
     Active Substance: LOVASTATIN
     Indication: Blood pressure abnormal
     Dosage: 75 MILLIGRAM, BID (AROUND 1993)
     Route: 048
  11. CLOPIDOGREL [Concomitant]
     Active Substance: CLOPIDOGREL BISULFATE
     Indication: Hypercoagulation
     Dosage: 75 MILLIGRAM, QD (1 DF IN MORNING) (AROUND 1993)
     Route: 065

REACTIONS (4)
  - Dyspnoea [Unknown]
  - Device delivery system issue [Unknown]
  - Drug dose omission by device [Unknown]
  - Product delivery mechanism issue [Unknown]

NARRATIVE: CASE EVENT DATE: 20230301
